FAERS Safety Report 5661998-7 (Version None)
Quarter: 2008Q2

REPORT INFORMATION
  Report Type: 
  Country: None (occurrence: None)
  Receive Date: 20080201
  Receipt Date: 20051003
  Transmission Date: 20081010
  Serious: Yes (Other)
  Sender: FDA-Public Use
  Company Number: 421269

PATIENT
  Age: 62 Year
  Sex: Female
  Weight: 60.8 kg

DRUGS (11)
  1. COPEGUS [Suspect]
     Indication: HEPATITIS C
     Dosage: ORAL
     Route: 048
     Dates: start: 20050211
  2. PEG-INTRON [Suspect]
     Indication: HEPATITIS C
     Dosage: SUBCUTANEOUS
     Route: 058
     Dates: start: 20050211
  3. ACYCLOVIR [Concomitant]
  4. AMBIEN [Concomitant]
  5. CALCIUM (CALCIUM) [Concomitant]
  6. CHONDROITIN/GLUCOSAMINE [Concomitant]
  7. NEXIUM [Concomitant]
  8. ACETAMINOPHEN [Concomitant]
  9. VALIUM [Concomitant]
  10. VITAMIN B COMPLEX (VITAMIN B COMPLEX) [Concomitant]
  11. VITAMIN E (ALPHA-TOCOPHEROL) [Concomitant]

REACTIONS (1)
  - ANAEMIA [None]
